FAERS Safety Report 11351072 (Version 1)
Quarter: 2015Q3

REPORT INFORMATION
  Report Type: Spontaneous
  Country: US (occurrence: US)
  Receive Date: 20150807
  Receipt Date: 20150807
  Transmission Date: 20151125
  Serious: No
  Sender: FDA-Public Use
  Company Number: US-JNJFOC-20150606819

PATIENT
  Age: 34 Year
  Sex: Female

DRUGS (2)
  1. ERYTHROMYCIN. [Suspect]
     Active Substance: ERYTHROMYCIN
     Indication: GASTROINTESTINAL MOTILITY DISORDER
     Dosage: SECOND DOSE POST OPERATIVELY
     Route: 065
  2. ERYTHROMYCIN. [Suspect]
     Active Substance: ERYTHROMYCIN
     Indication: GASTROINTESTINAL MOTILITY DISORDER
     Dosage: LOW DOSE OF ERYTHROMYCIN
     Route: 065

REACTIONS (1)
  - Off label use [Unknown]
